FAERS Safety Report 21362879 (Version 1)
Quarter: 2022Q3

REPORT INFORMATION
  Report Type: Spontaneous
  Country: CH (occurrence: CH)
  Receive Date: 20220922
  Receipt Date: 20220922
  Transmission Date: 20221027
  Serious: Yes (Other)
  Sender: FDA-Public Use
  Company Number: None

PATIENT
  Age: 35 Year
  Sex: Female

DRUGS (6)
  1. ROCEPHIN [Suspect]
     Active Substance: CEFTRIAXONE SODIUM
     Indication: Pneumonia
     Dosage: 2 G DAILY INTRAVENOUS APPLICATION FROM 12-OCT-2021 TO 13-OCT-2021
     Route: 042
     Dates: start: 20211012, end: 20211013
  2. OCREVUS [Suspect]
     Active Substance: OCRELIZUMAB
     Indication: Multiple sclerosis
     Dosage: OCREVUS (OCRELIZUMAB) PROBABLY 600 MG EVERY 6 MONTHS INTRAVENOUS APPLICATION SINCE SEPTEMBER 201
     Route: 042
     Dates: start: 201809, end: 20210916
  3. DAFALGAN [Concomitant]
     Active Substance: ACETAMINOPHEN
     Dosage: DAFALGAN (PARACETAMOL) 500 MG 1-1-1-1 VERMUTLICH AB DEM 12.10.2021 BIS AUF WEITERES
     Route: 048
     Dates: start: 20211012
  4. DALFAMPRIDINE [Concomitant]
     Active Substance: DALFAMPRIDINE
     Dosage: FAMPYRA (FAMPRIDIN) 10 MG 1-0-0-1 SEIT UNBEKANNTEM ZEITPUNKT BIS AUF WEITERES
     Route: 048
  5. CLARITHROMYCIN [Concomitant]
     Active Substance: CLARITHROMYCIN
     Dosage: CLARITHROMYCIN SANDOZ 500 MG 1-0-1-0 VOM 12.10.2021 BIS AM 18.10.2021
     Route: 048
     Dates: start: 20211012, end: 20211018
  6. CEFEPIME [Concomitant]
     Active Substance: CEFEPIME HYDROCHLORIDE
     Dosage: CEFEPIM SANDOZ 1 G INTRAVENOSE APPLIKATION ALLE 8 STUNDEN VOM 13.10.2021 BIS AM 18.10.2021
     Route: 042
     Dates: start: 20211013, end: 20211018

REACTIONS (2)
  - Neutropenia [Recovering/Resolving]
  - Agranulocytosis [Recovering/Resolving]

NARRATIVE: CASE EVENT DATE: 20211012
